FAERS Safety Report 14581531 (Version 3)
Quarter: 2018Q1

REPORT INFORMATION
  Report Type: Report from Study
  Country: US (occurrence: US)
  Receive Date: 20180228
  Receipt Date: 20180323
  Transmission Date: 20180509
  Serious: Yes (Hospitalization)
  Sender: FDA-Public Use
  Company Number: US-EISAI MEDICAL RESEARCH-EC-2018-035128

PATIENT
  Sex: Male
  Weight: 79 kg

DRUGS (20)
  1. LOPERAMIDE [Concomitant]
     Active Substance: LOPERAMIDE
  2. UREA. [Concomitant]
     Active Substance: UREA
  3. DORZOLAMIDE HCL [Concomitant]
     Active Substance: DORZOLAMIDE HYDROCHLORIDE
  4. TUMS [Concomitant]
     Active Substance: CALCIUM CARBONATE
  5. CARVEDILOL. [Concomitant]
     Active Substance: CARVEDILOL
  6. LATANOPROST. [Concomitant]
     Active Substance: LATANOPROST
  7. LENVIMA [Suspect]
     Active Substance: LENVATINIB
     Route: 048
     Dates: start: 201801, end: 201802
  8. TIMOLOL MALEATE. [Concomitant]
     Active Substance: TIMOLOL MALEATE
  9. LEVOFLOXACIN. [Concomitant]
     Active Substance: LEVOFLOXACIN
  10. LENVIMA [Suspect]
     Active Substance: LENVATINIB
     Indication: RENAL CANCER
     Route: 048
     Dates: start: 20180109, end: 201801
  11. AFINITOR [Concomitant]
     Active Substance: EVEROLIMUS
  12. PANTOPRAZOLE SODIUM. [Concomitant]
     Active Substance: PANTOPRAZOLE SODIUM
  13. AZOPT [Concomitant]
     Active Substance: BRINZOLAMIDE
  14. LISINOPRIL-HYDROCHLORO [Concomitant]
  15. PREDNISOLONE ACETATE. [Concomitant]
     Active Substance: PREDNISOLONE ACETATE
  16. LIDOCAINE HCL VISCOUS [Concomitant]
  17. LENVIMA [Suspect]
     Active Substance: LENVATINIB
     Route: 048
     Dates: start: 201802, end: 201803
  18. LENVIMA [Suspect]
     Active Substance: LENVATINIB
     Route: 048
     Dates: start: 201803
  19. GABAPENTIN. [Concomitant]
     Active Substance: GABAPENTIN
  20. AMLODIPINE BESYLATE. [Concomitant]
     Active Substance: AMLODIPINE BESYLATE

REACTIONS (11)
  - Fatigue [Not Recovered/Not Resolved]
  - Abdominal distension [Unknown]
  - Feeling cold [Not Recovered/Not Resolved]
  - Diarrhoea [Unknown]
  - Pain in extremity [Unknown]
  - Oedema peripheral [Unknown]
  - Sinus disorder [Unknown]
  - Stomatitis [Unknown]
  - Hypertension [Not Recovered/Not Resolved]
  - Dysphonia [Unknown]
  - Nasal ulcer [Recovering/Resolving]

NARRATIVE: CASE EVENT DATE: 2018
